FAERS Safety Report 16225870 (Version 2)
Quarter: 2019Q2

REPORT INFORMATION
  Report Type: Spontaneous
  Country: FR (occurrence: FR)
  Receive Date: 20190423
  Receipt Date: 20190503
  Transmission Date: 20190711
  Serious: Yes (Hospitalization)
  Sender: FDA-Public Use
  Company Number: FR-PROVELL PHARMACEUTICALS-2066117

PATIENT
  Age: 66 Year
  Sex: Female

DRUGS (4)
  1. TRAMADOL. [Concomitant]
     Active Substance: TRAMADOL
  2. NABUCOX [Concomitant]
     Active Substance: NABUMETONE
  3. EUTHYROX [Suspect]
     Active Substance: LEVOTHYROXINE SODIUM
     Indication: THYROID DISORDER
     Dates: end: 2018
  4. DAFLON [Concomitant]

REACTIONS (8)
  - Lip and/or oral cavity cancer [Not Recovered/Not Resolved]
  - Malaise [None]
  - Pain [None]
  - Asthenia [None]
  - Fatigue [None]
  - Lymphadenopathy [None]
  - General physical health deterioration [None]
  - Gait disturbance [None]

NARRATIVE: CASE EVENT DATE: 2019
